FAERS Safety Report 11167812 (Version 1)
Quarter: 2015Q2

REPORT INFORMATION
  Report Type: Spontaneous
  Country: US (occurrence: None)
  Receive Date: 20150603
  Receipt Date: 20150603
  Transmission Date: 20150821
  Serious: Yes (Hospitalization)
  Sender: FDA-Public Use
  Company Number: 2015SMT00097

PATIENT
  Age: 66 Year
  Sex: Male
  Weight: 106.6 kg

DRUGS (3)
  1. ADDITIONAL UNSPECIFIED MEDICATION(S) [Concomitant]
  2. METFORMIN [Concomitant]
     Active Substance: METFORMIN HYDROCHLORIDE
  3. REGRANEX [Suspect]
     Active Substance: BECAPLERMIN
     Indication: WOUND
     Dosage: 0.01%, 1X/DAY, TOPICAL
     Route: 061
     Dates: start: 201504

REACTIONS (6)
  - Pyrexia [None]
  - Gangrene [None]
  - Application site infection [None]
  - Blood glucose decreased [None]
  - Application site discharge [None]
  - Drug ineffective [None]

NARRATIVE: CASE EVENT DATE: 201504
